FAERS Safety Report 18485264 (Version 1)
Quarter: 2020Q4

REPORT INFORMATION
  Report Type: Spontaneous
  Country: GB (occurrence: GB)
  Receive Date: 20201110
  Receipt Date: 20201110
  Transmission Date: 20210114
  Serious: Yes (Other)
  Sender: FDA-Public Use
  Company Number: GB-SA-2020SA310775

PATIENT

DRUGS (1)
  1. OXALIPLATIN. [Suspect]
     Active Substance: OXALIPLATIN
     Dosage: 165 MG, QD
     Route: 042
     Dates: start: 20201013, end: 20201013

REACTIONS (3)
  - Lip erythema [Unknown]
  - Lip swelling [Recovered/Resolved]
  - Paraesthesia oral [Unknown]

NARRATIVE: CASE EVENT DATE: 20201013
